FAERS Safety Report 9133775 (Version 2)
Quarter: 2013Q2

REPORT INFORMATION
  Report Type: Spontaneous
  Country: CA (occurrence: CA)
  Receive Date: 20130303
  Receipt Date: 20130405
  Transmission Date: 20140414
  Serious: Yes (Death)
  Sender: FDA-Public Use
  Company Number: CA-US-EMD SERONO, INC.-7195849

PATIENT
  Age: 72 Year
  Sex: Male

DRUGS (7)
  1. REBIF [Suspect]
     Indication: MULTIPLE SCLEROSIS
     Route: 058
     Dates: start: 19980826, end: 201301
  2. APO AMLODIPINE (NORVASC) [Concomitant]
     Indication: PRODUCT USED FOR UNKNOWN INDICATION
     Dates: end: 201301
  3. APO- FENOFIBRATE MICRONISE [Concomitant]
     Indication: PRODUCT USED FOR UNKNOWN INDICATION
     Dates: end: 201301
  4. INHIBACE PLUS [Concomitant]
     Indication: PRODUCT USED FOR UNKNOWN INDICATION
     Dosage: 5 PLUS 12.5MG
     Dates: end: 201301
  5. ASAPHEN EC [Concomitant]
     Indication: PRODUCT USED FOR UNKNOWN INDICATION
     Dates: end: 201301
  6. APO METOPROLOL L (LOPRESSOR) [Concomitant]
     Indication: PRODUCT USED FOR UNKNOWN INDICATION
     Dates: end: 201301
  7. APO- SIMVASTATIN (ZOCOR) [Concomitant]
     Indication: PRODUCT USED FOR UNKNOWN INDICATION
     Dates: end: 201301

REACTIONS (1)
  - Myocardial infarction [Fatal]
